FAERS Safety Report 4816879-5 (Version None)
Quarter: 2005Q4

REPORT INFORMATION
  Report Type: 
  Country: None (occurrence: None)
  Receive Date: 20051031
  Receipt Date: 20051031
  Transmission Date: 20060501
  Serious: Yes (Hospitalization)
  Sender: FDA-Public Use
  Company Number: None

PATIENT
  Age: 79 Year
  Sex: Male

DRUGS (9)
  1. GLYBURIDE [Suspect]
     Indication: DIABETES MELLITUS NON-INSULIN-DEPENDENT
     Dosage: 5 MG QD
     Dates: start: 20020601
  2. HYDROCHLOROTHIAZIDE [Concomitant]
  3. ISOSORBIDE [Concomitant]
  4. NIFEDIPINE [Concomitant]
  5. NITROGLYCERIN [Concomitant]
  6. METOPROLOL [Concomitant]
  7. ASPIRIN [Concomitant]
  8. FINASTERIDE [Concomitant]
  9. TAMSULOSIN [Concomitant]

REACTIONS (1)
  - HYPOGLYCAEMIA [None]
